FAERS Safety Report 22150440 (Version 1)
Quarter: 2023Q1

REPORT INFORMATION
  Report Type: Report from Study
  Country: CA (occurrence: CA)
  Receive Date: 20230329
  Receipt Date: 20230329
  Transmission Date: 20230418
  Serious: Yes (Hospitalization, Other)
  Sender: FDA-Public Use
  Company Number: CA-JNJFOC-20230136651

PATIENT
  Age: 29 Year
  Sex: Female
  Weight: 110 kg

DRUGS (3)
  1. REMICADE [Suspect]
     Active Substance: INFLIXIMAB
     Indication: Crohn^s disease
     Dosage: PATIENT RECEIVED REMICADE INFUSION ON 17-JAN-2023?EXPIRATION DATE 31-JUL-2025?ON 10-FEB-2023, RECEIV
     Route: 041
     Dates: start: 20220817
  2. REMICADE [Suspect]
     Active Substance: INFLIXIMAB
     Dosage: STAT DOSE
     Route: 041
     Dates: start: 20230224
  3. REMICADE [Suspect]
     Active Substance: INFLIXIMAB
     Route: 042
     Dates: start: 20230324

REACTIONS (9)
  - Crohn^s disease [Recovering/Resolving]
  - Escherichia infection [Unknown]
  - Intestinal resection [Unknown]
  - Food poisoning [Recovering/Resolving]
  - Muscle spasms [Recovered/Resolved]
  - Eczema [Recovered/Resolved]
  - Nausea [Unknown]
  - Constipation [Unknown]
  - Abdominal pain [Unknown]

NARRATIVE: CASE EVENT DATE: 20230111
